FAERS Safety Report 16378245 (Version 1)
Quarter: 2019Q2

REPORT INFORMATION
  Report Type: Spontaneous
  Country: US (occurrence: US)
  Receive Date: 20190425
  Receipt Date: 20190425
  Transmission Date: 20190711
  Serious: Yes (Hospitalization)
  Sender: FDA-Public Use
  Company Number: None

PATIENT
  Age: 72 Year
  Sex: Male

DRUGS (1)
  1. XALKORI [Suspect]
     Active Substance: CRIZOTINIB
     Route: 048
     Dates: start: 20190206, end: 20190415

REACTIONS (4)
  - Muscular weakness [None]
  - Gait inability [None]
  - Hypoaesthesia [None]
  - Dysgeusia [None]

NARRATIVE: CASE EVENT DATE: 20190415
